FAERS Safety Report 11539285 (Version 1)
Quarter: 2015Q3

REPORT INFORMATION
  Report Type: Spontaneous
  Country: US (occurrence: None)
  Receive Date: 20150922
  Receipt Date: 20150922
  Transmission Date: 20151125
  Serious: No
  Sender: FDA-Public Use
  Company Number: None

PATIENT
  Age: 38 Year
  Sex: Female
  Weight: 93.9 kg

DRUGS (3)
  1. LOSARTAN POTASSIUM. [Concomitant]
     Active Substance: LOSARTAN POTASSIUM
  2. LOSARTAN POTASSIUM. [Suspect]
     Active Substance: LOSARTAN POTASSIUM
     Indication: HYPERTENSION
     Route: 048
     Dates: start: 20150914, end: 20150921
  3. CPAP MACHINE [Concomitant]

REACTIONS (13)
  - Pollakiuria [None]
  - Paraesthesia [None]
  - Swelling [None]
  - Impaired work ability [None]
  - Dizziness [None]
  - Ageusia [None]
  - Memory impairment [None]
  - Fatigue [None]
  - Anosmia [None]
  - Muscle spasms [None]
  - Skin tightness [None]
  - Pruritus [None]
  - Decreased appetite [None]

NARRATIVE: CASE EVENT DATE: 20150921
